FAERS Safety Report 15292727 (Version 1)
Quarter: 2018Q3

REPORT INFORMATION
  Report Type: Spontaneous
  Country: US (occurrence: US)
  Receive Date: 20180806
  Receipt Date: 20180806
  Transmission Date: 20181010
  Serious: Yes (Hospitalization)
  Sender: FDA-Public Use
  Company Number: None

PATIENT
  Age: 72 Year
  Sex: Male

DRUGS (8)
  1. CREON [Suspect]
     Active Substance: PANCRELIPASE AMYLASE\PANCRELIPASE LIPASE\PANCRELIPASE PROTEASE
     Indication: CARCINOID TUMOUR OF THE DUODENUM
     Dosage: 48000 IU; WITH EACH MEAL; ORAL?
     Route: 048
     Dates: start: 20161025
  2. CREON [Suspect]
     Active Substance: PANCRELIPASE AMYLASE\PANCRELIPASE LIPASE\PANCRELIPASE PROTEASE
     Indication: CARCINOID TUMOUR OF THE DUODENUM
     Dosage: 24000 IU WITH EACH SNACK ORAL
     Route: 048
     Dates: start: 20161025
  3. OCTREOTIDE 200MCG [Suspect]
     Active Substance: OCTREOTIDE
  4. OCTREOTIDE. [Concomitant]
     Active Substance: OCTREOTIDE
  5. CREON [Suspect]
     Active Substance: PANCRELIPASE AMYLASE\PANCRELIPASE LIPASE\PANCRELIPASE PROTEASE
     Indication: CARCINOID TUMOUR OF THE DUODENUM
     Dosage: ?          OTHER DOSE:24000 IU;OTHER FREQUENCY:WITH EACH MEAL;?
     Route: 048
     Dates: start: 20161025
  6. OCTREOTIDE. [Suspect]
     Active Substance: OCTREOTIDE
  7. POTASSIUM CHLORIDE. [Concomitant]
     Active Substance: POTASSIUM CHLORIDE
  8. MEGESTROL [Suspect]
     Active Substance: MEGESTROL

REACTIONS (2)
  - Radiation injury [None]
  - Internal haemorrhage [None]

NARRATIVE: CASE EVENT DATE: 20180701
